FAERS Safety Report 4635997-8 (Version None)
Quarter: 2005Q2

REPORT INFORMATION
  Report Type: 
  Country: None (occurrence: None)
  Receive Date: 20050415
  Receipt Date: 20030721
  Transmission Date: 20051028
  Serious: Yes (Hospitalization, Other)
  Sender: FDA-Public Use
  Company Number: CZ-BRISTOL-MYERS SQUIBB COMPANY-12330312

PATIENT
  Age: 72 Year
  Sex: Male

DRUGS (4)
  1. IRBESARTAN [Suspect]
     Indication: CARDIAC FAILURE
     Route: 048
     Dates: start: 20030520
  2. WARFARIN SODIUM [Concomitant]
     Dates: start: 20020101
  3. HYDROCHLOROTHIAZIDE [Concomitant]
     Dates: start: 20020826
  4. CARBIMAZOLE [Concomitant]
     Dates: start: 20020101

REACTIONS (2)
  - PROSTATE CANCER [None]
  - SYNCOPE [None]
